FAERS Safety Report 4332376-8 (Version None)
Quarter: 2004Q2

REPORT INFORMATION
  Report Type: 
  Country: None (occurrence: None)
  Receive Date: 20040401
  Receipt Date: 20040325
  Transmission Date: 20050107
  Serious: Yes (Hospitalization)
  Sender: FDA-Public Use
  Company Number: BE-JNJFOC-20040202566

PATIENT
  Age: 4 Year
  Sex: Female
  Weight: 11 kg

DRUGS (7)
  1. PROPULSID [Suspect]
     Indication: ENCEPHALOPATHY
     Dosage: 2.2 MG, 4 IN 1 DAY,
     Dates: start: 20030228, end: 20030910
  2. PROPULSID [Suspect]
     Indication: INFANTILE SPASMS
     Dosage: 2.2 MG, 4 IN 1 DAY,
     Dates: start: 20030228, end: 20030910
  3. ATROVENT [Concomitant]
  4. ACETYLCYSTEINE [Concomitant]
  5. LOMUDAL (CROMOGLICATE SODIUM) [Concomitant]
  6. SABRIL (VIGABATRIN) [Concomitant]
  7. DAKTOZIN (DAKTOZIN) [Concomitant]

REACTIONS (8)
  - AGITATION [None]
  - DEHYDRATION [None]
  - DENTAL CARIES [None]
  - DIET REFUSAL [None]
  - DRUG INEFFECTIVE [None]
  - HYPERTHERMIA [None]
  - OESOPHAGITIS [None]
  - PAIN [None]
